FAERS Safety Report 11540382 (Version 1)
Quarter: 2015Q3

REPORT INFORMATION
  Report Type: Spontaneous
  Country: US (occurrence: US)
  Receive Date: 20150923
  Receipt Date: 20150923
  Transmission Date: 20151125
  Serious: No
  Sender: FDA-Public Use
  Company Number: US-BEH-2014045005

PATIENT
  Age: 62 Year
  Sex: Female
  Weight: 67 kg

DRUGS (22)
  1. PRIVIGEN [Suspect]
     Active Substance: HUMAN IMMUNOGLOBULIN G
     Indication: POLYMYOSITIS
     Route: 042
     Dates: start: 20140803
  2. VALIUM [Concomitant]
     Active Substance: DIAZEPAM
  3. VITAMIN B [Concomitant]
     Active Substance: VITAMIN B
  4. NORMAL SALINE [Concomitant]
     Active Substance: SODIUM CHLORIDE
  5. DIPHENHYDRAMINE. [Concomitant]
     Active Substance: DIPHENHYDRAMINE
  6. CYANOCOBALAMIN. [Concomitant]
     Active Substance: CYANOCOBALAMIN
  7. MULTIVITAMIN [Concomitant]
     Active Substance: VITAMINS
  8. ZOFRAN [Concomitant]
     Active Substance: ONDANSETRON HYDROCHLORIDE
  9. VITAMIN E [Concomitant]
     Active Substance: .ALPHA.-TOCOPHEROL
  10. GLUCOSAMINE [Concomitant]
     Active Substance: GLUCOSAMINE
  11. CITRACAL+D [Concomitant]
  12. VITAMIN D2 [Concomitant]
     Active Substance: ERGOCALCIFEROL
  13. IBUPROFEN. [Concomitant]
     Active Substance: IBUPROFEN
  14. ACYCLOVIR. [Concomitant]
     Active Substance: ACYCLOVIR
  15. EPIPEN [Concomitant]
     Active Substance: EPINEPHRINE
  16. TIROSINT [Concomitant]
     Active Substance: LEVOTHYROXINE SODIUM
  17. LEXAPRO [Concomitant]
     Active Substance: ESCITALOPRAM OXALATE
  18. FISH OIL [Concomitant]
     Active Substance: FISH OIL
  19. PRIVIGEN [Suspect]
     Active Substance: HUMAN IMMUNOGLOBULIN G
     Indication: MYOPATHY
     Route: 042
     Dates: start: 20140803
  20. TORADOL [Concomitant]
     Active Substance: KETOROLAC TROMETHAMINE
  21. ECOTRIN [Concomitant]
     Active Substance: ASPIRIN
  22. HYDROCHLOROTHIAZIDE. [Concomitant]
     Active Substance: HYDROCHLOROTHIAZIDE

REACTIONS (1)
  - Migraine [Unknown]

NARRATIVE: CASE EVENT DATE: 20140807
